FAERS Safety Report 8029344 (Version 4)
Quarter: 2013Q4

REPORT INFORMATION
  Report Type: Report from Study
  Country: US (occurrence: US)
  Receive Date: 20110711
  Receipt Date: 20131226
  Transmission Date: 20140711
  Serious: Yes (Other)
  Sender: FDA-Public Use
  Company Number: PHHY2011US48530

PATIENT
  Age: 52 Year
  Sex: Male
  Weight: 136.5 kg

DRUGS (28)
  1. GILENYA [Suspect]
     Indication: RELAPSING-REMITTING MULTIPLE SCLEROSIS
     Dosage: 0.5 MG, QD
     Route: 048
     Dates: start: 20110411, end: 20110425
  2. GILENYA [Suspect]
     Dosage: 0.5 MG, QD
     Route: 048
     Dates: start: 20110504, end: 20110518
  3. FAMPRIDINE [Concomitant]
     Indication: MULTIPLE SCLEROSIS
     Dosage: UNK UKN, UNK
     Route: 048
  4. COUMADINE [Concomitant]
     Dosage: UNK UKN, UNK
     Route: 048
  5. BACLOFEN [Concomitant]
     Dosage: 2 DF, QID
     Route: 048
  6. DEXAMETHASONE [Concomitant]
     Dosage: 1 DF, QD
     Route: 048
  7. ZANAFLEX [Concomitant]
     Dosage: 4 MG, QID
     Route: 048
  8. CRESTOR [Concomitant]
     Dosage: 20 MG, QHS
  9. BUMEX [Concomitant]
     Dosage: UNK DF, UNK
  10. VITAMIN D [Concomitant]
     Dosage: 1 DF, BID
  11. VITAMIN C [Concomitant]
     Dosage: 2 DF, QD
  12. VITAMIN B COMPLEX [Concomitant]
     Dosage: UNK UKN, UNK
  13. WELLBUTRIN XL [Concomitant]
     Dosage: 1 DF, QD
  14. PROTONIX [Concomitant]
     Dosage: 1 DF, QD
     Route: 048
  15. OMEGA 3 FISH OIL [Concomitant]
     Dosage: UNK UKN, UNK
  16. DEPLIN [Concomitant]
     Dosage: UNK UKN, UNK
  17. POTASSIUM [Concomitant]
     Dosage: 1 DF, QID
  18. LEVOTHYROXINE [Concomitant]
     Dosage: 1 DF, QID
  19. ALBUTEROL [Concomitant]
     Dosage: 90 UG, PRN
  20. LORATADINE [Concomitant]
     Dosage: 1 DF, QD
  21. METFORMIN [Concomitant]
     Dosage: 1000 MG, UNK
     Route: 048
  22. METFORMIN [Concomitant]
     Dosage: 1 DF, BID
  23. NEURONTIN [Concomitant]
     Dosage: 300 MG, BID
  24. NUVIGIL [Concomitant]
     Dosage: UNK UKN, UNK
  25. GLIPIZIDE [Concomitant]
     Dosage: UNK UKN, UNK
  26. FOSAMAX [Concomitant]
     Dosage: UNK UKN, UNK
  27. AVODART [Concomitant]
     Dosage: 0.5 MG, UNK
  28. REBIF [Concomitant]
     Dosage: UNK UKN, UNK

REACTIONS (8)
  - Cataract [Unknown]
  - Macular oedema [Unknown]
  - Vision blurred [Recovering/Resolving]
  - Lacrimation increased [Unknown]
  - Visual impairment [Recovering/Resolving]
  - Vitreous floaters [Unknown]
  - Malaise [Unknown]
  - Eye pain [Unknown]
